FAERS Safety Report 9188411 (Version 2)
Quarter: 2013Q3

REPORT INFORMATION
  Report Type: Spontaneous
  Country: FR (occurrence: FR)
  Receive Date: 20130325
  Receipt Date: 20130718
  Transmission Date: 20140515
  Serious: Yes (Life-Threatening, Hospitalization)
  Sender: FDA-Public Use
  Company Number: FR-RANBAXY-2013RR-66420

PATIENT
  Age: 81 Year
  Sex: Male

DRUGS (4)
  1. AMOXICILLIN [Suspect]
     Indication: TOOTH EXTRACTION
     Dosage: 3 G/DAY
     Route: 048
     Dates: start: 20130130
  2. AMOXICILLIN [Suspect]
     Indication: TOOTH EXTRACTION
     Dosage: 2 G/DAY
     Route: 048
     Dates: start: 20130131, end: 20130205
  3. AUGMENTIN [Suspect]
     Indication: ALVEOLITIS
     Dosage: 2 G/DAY
     Route: 048
     Dates: start: 20130205, end: 20130311
  4. FORTUM [Concomitant]
     Indication: FEBRILE NEUTROPENIA
     Dosage: UNK
     Route: 042
     Dates: start: 20130211, end: 20130214

REACTIONS (1)
  - Agranulocytosis [Recovered/Resolved]
